FAERS Safety Report 6565853-X (Version None)
Quarter: 2010Q1

REPORT INFORMATION
  Report Type: 
  Country: None (occurrence: None)
  Receive Date: 20100201
  Receipt Date: 20100127
  Transmission Date: 20100710
  Serious: Yes (Death)
  Sender: FDA-Public Use
  Company Number: US-GILEAD-2010-0026384

PATIENT
  Sex: Male
  Weight: 73.094 kg

DRUGS (23)
  1. LETAIRIS [Suspect]
     Indication: PULMONARY ARTERIAL HYPERTENSION
     Route: 048
     Dates: start: 20090909
  2. NITROGLYCERIN [Concomitant]
  3. ZOCOR [Concomitant]
  4. DILTIAZEM HCL [Concomitant]
  5. OXYGEN [Concomitant]
  6. BUMEX [Concomitant]
  7. COMBIVENT [Concomitant]
  8. BACTRIM DS [Concomitant]
  9. FOSAMAX [Concomitant]
  10. PRILOSEC [Concomitant]
  11. GLIPIZIDE [Concomitant]
  12. ACETAMINOPHEN [Concomitant]
  13. PREDNISONE [Concomitant]
  14. VICODIN [Concomitant]
  15. POTASSIUM CHLORIDE [Concomitant]
  16. ATRAC-TAIN [Concomitant]
  17. ARTIFICIAL TEAR DROP [Concomitant]
  18. ASPERCREME [Concomitant]
  19. COLCHICINE [Concomitant]
  20. SENNA [Concomitant]
  21. GUAIFENESIN [Concomitant]
  22. VITAMIN D [Concomitant]
  23. CRANBERRY [Concomitant]

REACTIONS (1)
  - CEREBROVASCULAR ACCIDENT [None]
